FAERS Safety Report 21722854 (Version 2)
Quarter: 2023Q1

REPORT INFORMATION
  Report Type: Report from Study
  Country: FR (occurrence: None)
  Receive Date: 20221213
  Receipt Date: 20230126
  Transmission Date: 20230417
  Serious: Yes (Death)
  Sender: FDA-Public Use
  Company Number: 2022A403654

PATIENT
  Age: 67 Year
  Sex: Male
  Weight: 120 kg

DRUGS (1)
  1. EVUSHELD [Suspect]
     Active Substance: CILGAVIMAB\TIXAGEVIMAB
     Indication: COVID-19 prophylaxis
     Dosage: 300 MG (TIXAGEVIMAB 150 MG/ CILGAVIMAB 150 MG) - FIRST COMPLETE ADMINISTRATION ONCE/SINGLE ADMINI...
     Route: 030
     Dates: start: 20220316, end: 20220316

REACTIONS (1)
  - Death [Fatal]

NARRATIVE: CASE EVENT DATE: 20220817
